FAERS Safety Report 5062465-4 (Version None)
Quarter: 2006Q3

REPORT INFORMATION
  Report Type: 
  Country: None (occurrence: None)
  Receive Date: 20060721
  Receipt Date: 20060705
  Transmission Date: 20061208
  Serious: Yes (Death)
  Sender: FDA-Public Use
  Company Number: US200606004412

PATIENT
  Sex: Male

DRUGS (2)
  1. FORTEO [Suspect]
     Indication: OSTEOPOROSIS
     Dates: end: 20051009
  2. FORTEO PEN (150MCG/ML) (FORTEO PEN 250MCG/ML (3ML))PEN, DISPOSABLE [Concomitant]

REACTIONS (3)
  - ILL-DEFINED DISORDER [None]
  - MYOCARDIAL INFARCTION [None]
  - VERTEBROPLASTY [None]
